FAERS Safety Report 17151351 (Version 1)
Quarter: 2019Q4

REPORT INFORMATION
  Report Type: Spontaneous
  Country: US (occurrence: US)
  Receive Date: 20191213
  Receipt Date: 20191213
  Transmission Date: 20200122
  Serious: No
  Sender: FDA-Public Use
  Company Number: US-PFIZER INC-2019537840

PATIENT
  Age: 56 Year

DRUGS (2)
  1. LIPITOR [Suspect]
     Active Substance: ATORVASTATIN CALCIUM
  2. VASOTEC [ENALAPRILAT] [Suspect]
     Active Substance: ENALAPRILAT
     Dosage: UNK

REACTIONS (1)
  - Drug hypersensitivity [Unknown]
